FAERS Safety Report 8133514-1 (Version None)
Quarter: 2012Q1

REPORT INFORMATION
  Report Type: 
  Country: None (occurrence: None)
  Receive Date: 20120213
  Receipt Date: 20120201
  Transmission Date: 20120608
  Serious: Yes (Hospitalization, Other)
  Sender: FDA-Public Use
  Company Number: US-MYLANLABS-2012S1002967

PATIENT
  Sex: Male
  Weight: 83 kg

DRUGS (18)
  1. FLECAINIDE [Concomitant]
  2. LOVAZA [Concomitant]
  3. FERROUS SULFATE TAB [Concomitant]
  4. BYSTOLIC [Concomitant]
  5. NITROGLYCERIN [Concomitant]
  6. PLAVIX [Concomitant]
  7. ACTOS [Concomitant]
  8. CRESTOR [Concomitant]
  9. STARLIX [Concomitant]
  10. ASPIRIN [Concomitant]
  11. METFORMIN HCL [Concomitant]
  12. PEPCID [Concomitant]
  13. PROMETHAZINE [Concomitant]
  14. ETODOLAC [Concomitant]
  15. DIGOXIN [Suspect]
     Indication: SUPRAVENTRICULAR TACHYCARDIA
     Route: 048
     Dates: start: 20080411, end: 20080415
  16. ATENOLOL [Concomitant]
  17. CELEBREX [Concomitant]
  18. TRAMADOL HCL [Concomitant]

REACTIONS (28)
  - ATRIOVENTRICULAR BLOCK FIRST DEGREE [None]
  - SUPRAVENTRICULAR EXTRASYSTOLES [None]
  - PRESYNCOPE [None]
  - ASTHENIA [None]
  - CATHETERISATION CARDIAC ABNORMAL [None]
  - LEFT VENTRICULAR HYPERTROPHY [None]
  - HYPOAESTHESIA ORAL [None]
  - VENTRICULAR EXTRASYSTOLES [None]
  - VENTRICULAR HYPOKINESIA [None]
  - DIZZINESS [None]
  - TACHYARRHYTHMIA [None]
  - CARDIAC VENTRICULOGRAM LEFT ABNORMAL [None]
  - DYSPNOEA [None]
  - NAUSEA [None]
  - SUPRAVENTRICULAR TACHYCARDIA [None]
  - ANGINA PECTORIS [None]
  - HEART RATE DECREASED [None]
  - VISION BLURRED [None]
  - SINUS BRADYCARDIA [None]
  - ACUTE CORONARY SYNDROME [None]
  - CHEST PAIN [None]
  - MUSCLE SPASMS [None]
  - CORONARY ARTERY DISEASE [None]
  - ATRIAL TACHYCARDIA [None]
  - CARDIAC STRESS TEST ABNORMAL [None]
  - PALPITATIONS [None]
  - FACIAL PARESIS [None]
  - CHEST DISCOMFORT [None]
